FAERS Safety Report 15906211 (Version 1)
Quarter: 2019Q1

REPORT INFORMATION
  Report Type: Spontaneous
  Country: CN (occurrence: CN)
  Receive Date: 20190204
  Receipt Date: 20190204
  Transmission Date: 20190417
  Serious: Yes (Other)
  Sender: FDA-Public Use
  Company Number: CN-PFIZER INC-2019043277

PATIENT
  Age: 59 Year
  Sex: Male
  Weight: 63 kg

DRUGS (1)
  1. PHARMORUBICIN [Suspect]
     Active Substance: EPIRUBICIN
     Indication: BLADDER CANCER
     Dosage: 50 MG, 1X/DAY
     Route: 043
     Dates: start: 20181112, end: 20181112

REACTIONS (5)
  - Drug hypersensitivity [Recovering/Resolving]
  - Vision blurred [Recovering/Resolving]
  - Blood pressure decreased [Recovering/Resolving]
  - Palpitations [Recovering/Resolving]
  - Fatigue [Recovering/Resolving]

NARRATIVE: CASE EVENT DATE: 20181112
